FAERS Safety Report 4535970-4 (Version None)
Quarter: 2004Q4

REPORT INFORMATION
  Report Type: 
  Country: None (occurrence: None)
  Receive Date: 20041222
  Receipt Date: 20041222
  Transmission Date: 20050328
  Serious: Yes (Other)
  Sender: FDA-Public Use
  Company Number: None

PATIENT
  Sex: Female
  Weight: 89.8122 kg

DRUGS (1)
  1. ISONIAZID [Suspect]
     Indication: TUBERCULOSIS
     Dosage: PO ONCE DAILY
     Route: 048
     Dates: start: 20041025, end: 20041108

REACTIONS (5)
  - BLOOD TEST ABNORMAL [None]
  - FATIGUE [None]
  - HEADACHE [None]
  - RASH [None]
  - VISION BLURRED [None]
